FAERS Safety Report 9181831 (Version 1)
Quarter: 2013Q1

REPORT INFORMATION
  Report Type: Spontaneous
  Country: US (occurrence: None)
  Receive Date: 20130321
  Receipt Date: 20130321
  Transmission Date: 20140127
  Serious: Yes (Hospitalization)
  Sender: FDA-Public Use
  Company Number: None

PATIENT
  Age: 39 Year
  Sex: Male
  Weight: 80.3 kg

DRUGS (1)
  1. ISONIAZID [Suspect]
     Indication: UPPER RESPIRATORY TRACT INFECTION
     Route: 048
     Dates: start: 20120802, end: 20120825

REACTIONS (11)
  - Pyrexia [None]
  - Cough [None]
  - Wheezing [None]
  - Rash [None]
  - Nausea [None]
  - Vomiting [None]
  - Asthenia [None]
  - Fatigue [None]
  - Diarrhoea [None]
  - Rash pruritic [None]
  - Dyspnoea [None]
